FAERS Safety Report 6100704-9 (Version None)
Quarter: 2009Q1

REPORT INFORMATION
  Report Type: 
  Country: None (occurrence: None)
  Receive Date: 20090303
  Receipt Date: 20090223
  Transmission Date: 20090719
  Serious: Yes (Hospitalization)
  Sender: FDA-Public Use
  Company Number: PHHO2009DE02689

PATIENT
  Sex: Female
  Weight: 92 kg

DRUGS (4)
  1. ZOLEDRONIC ACID [Suspect]
     Indication: METASTASES TO BONE
     Dosage: 4 MG
     Dates: start: 20090115
  2. VITAMIN D [Concomitant]
  3. CALCIUM [Concomitant]
  4. LETROZOLE [Concomitant]
     Indication: BREAST CANCER

REACTIONS (4)
  - ANGINA PECTORIS [None]
  - BACK PAIN [None]
  - CHEST PAIN [None]
  - HYPOAESTHESIA [None]
